FAERS Safety Report 6207325-8 (Version None)
Quarter: 2009Q2

REPORT INFORMATION
  Report Type: 
  Country: None (occurrence: None)
  Receive Date: 20090528
  Receipt Date: 20090526
  Transmission Date: 20091009
  Serious: No
  Sender: FDA-Public Use
  Company Number: US-B.I. PHARMACEUTICALS,INC./RIDGEFIELD-2009-BP-06430BP

PATIENT
  Sex: Female

DRUGS (3)
  1. AGGRENOX [Suspect]
     Indication: TRANSIENT ISCHAEMIC ATTACK
     Route: 048
     Dates: start: 20090412, end: 20090425
  2. AGGRENOX [Suspect]
     Route: 048
     Dates: start: 20090426
  3. LITHROPRIM [Concomitant]
     Indication: HYPERTENSION

REACTIONS (11)
  - BOWEL MOVEMENT IRREGULARITY [None]
  - COUGH [None]
  - DIZZINESS [None]
  - DRY THROAT [None]
  - DYSPEPSIA [None]
  - EARLY SATIETY [None]
  - HANGOVER [None]
  - HEADACHE [None]
  - INSOMNIA [None]
  - NAUSEA [None]
  - NIGHT SWEATS [None]
